FAERS Safety Report 8585431-0 (Version None)
Quarter: 2012Q3

REPORT INFORMATION
  Report Type: 
  Country: None (occurrence: None)
  Receive Date: 20120810
  Receipt Date: 20120802
  Transmission Date: 20120928
  Serious: Yes (Hospitalization)
  Sender: FDA-Public Use
  Company Number: US-ABBOTT-12P-163-0953577-04

PATIENT
  Sex: Female
  Weight: 96 kg

DRUGS (21)
  1. HUMIRA [Suspect]
     Route: 058
  2. PREDNISONE TAB [Concomitant]
     Dates: start: 20101025, end: 20101210
  3. DOCUSATE SODIUM [Concomitant]
     Indication: CONSTIPATION
     Dates: start: 20101210
  4. CYANOCOBALAMIN [Concomitant]
     Indication: VITAMIN B12 ABNORMAL
     Dates: start: 20111212
  5. PROVENTIL [Concomitant]
     Indication: DYSPNOEA
     Dosage: 2.5 MG/3 ML
     Route: 055
     Dates: start: 20110511
  6. HUMIRA [Suspect]
     Route: 058
  7. PREDNISONE TAB [Concomitant]
     Dates: start: 20110921, end: 20120116
  8. CYANOCOBALAMIN [Concomitant]
     Indication: ROUTINE HEALTH MAINTENANCE
     Route: 060
     Dates: start: 20110829, end: 20111212
  9. HUMIRA [Suspect]
     Indication: CROHN'S DISEASE
     Route: 058
     Dates: start: 20090311, end: 20090311
  10. PREDNISONE TAB [Concomitant]
     Dates: start: 20100817, end: 20101025
  11. FOLIC ACID [Concomitant]
     Indication: PROPHYLAXIS
     Dates: start: 20120227
  12. PREDNISONE TAB [Concomitant]
     Dates: start: 20090917, end: 20100816
  13. ERGOCALCIFEROL [Concomitant]
     Indication: VITAMIN D DEFICIENCY
     Dates: start: 20101210
  14. TRAMADOL HCL [Concomitant]
     Indication: PAIN
     Dates: start: 20110310
  15. FOSAMAX [Concomitant]
     Indication: OSTEOPENIA
     Dates: start: 20120116
  16. CALCIUM [Concomitant]
     Indication: OSTEOPENIA
     Dates: start: 20120116
  17. PREDNISONE TAB [Concomitant]
     Dates: start: 20101212, end: 20110829
  18. PREDNISONE TAB [Concomitant]
     Indication: CROHN'S DISEASE
     Dates: start: 20090101, end: 20090917
  19. PREDNISONE TAB [Concomitant]
     Dates: start: 20110829, end: 20110921
  20. PREDNISONE TAB [Concomitant]
     Dates: start: 20120116
  21. VICODIN [Concomitant]
     Indication: PAIN
     Dosage: 10-325 MG
     Dates: start: 20101210

REACTIONS (5)
  - PHARYNGITIS STREPTOCOCCAL [None]
  - NAUSEA [None]
  - URINARY INCONTINENCE [None]
  - BACK PAIN [None]
  - PAIN IN EXTREMITY [None]
